FAERS Safety Report 6445179-5 (Version None)
Quarter: 2009Q4

REPORT INFORMATION
  Report Type: 
  Country: None (occurrence: None)
  Receive Date: 20091117
  Receipt Date: 20091117
  Transmission Date: 20100525
  Serious: No
  Sender: FDA-Public Use
  Company Number: None

PATIENT
  Age: 27 Year
  Sex: Male
  Weight: 76.2043 kg

DRUGS (1)
  1. RISPERDONE [Suspect]
     Indication: SCHIZOPHRENIA
     Dosage: 3 MG 1X AT NIGHT PO
     Route: 048
     Dates: start: 20041110, end: 20091114

REACTIONS (12)
  - BLOOD PROLACTIN INCREASED [None]
  - DYSKINESIA [None]
  - DYSPHAGIA [None]
  - EYE PAIN [None]
  - LOSS OF LIBIDO [None]
  - MIGRAINE [None]
  - MUSCLE DISORDER [None]
  - MUSCLE SPASMS [None]
  - NAUSEA [None]
  - RETCHING [None]
  - SALIVARY HYPERSECRETION [None]
  - VOMITING [None]
